FAERS Safety Report 13095614 (Version 2)
Quarter: 2017Q1

REPORT INFORMATION
  Report Type: Report from Study
  Country: US (occurrence: US)
  Receive Date: 20170108
  Receipt Date: 20170130
  Transmission Date: 20170428
  Serious: Yes (Other)
  Sender: FDA-Public Use
  Company Number: US-AMGEN-USASL2017000764

PATIENT
  Sex: Male

DRUGS (1)
  1. ENBREL [Suspect]
     Active Substance: ETANERCEPT
     Indication: RHEUMATOID ARTHRITIS
     Dosage: 50 MG, WEEKLY
     Route: 065

REACTIONS (7)
  - Basal cell carcinoma [Recovered/Resolved]
  - Liver disorder [Unknown]
  - Post procedural infection [Recovered/Resolved]
  - Rheumatoid arthritis [Recovering/Resolving]
  - Renal disorder [Unknown]
  - Drug dose omission [Unknown]
  - Prostate examination abnormal [Recovering/Resolving]
